FAERS Safety Report 14691846 (Version 2)
Quarter: 2018Q2

REPORT INFORMATION
  Report Type: Spontaneous
  Country: GB (occurrence: GB)
  Receive Date: 20180329
  Receipt Date: 20180418
  Transmission Date: 20180711
  Serious: Yes (Other)
  Sender: FDA-Public Use
  Company Number: GB-BIOGEN-2018BI00547038

PATIENT
  Sex: Female

DRUGS (3)
  1. TECFIDERA [Suspect]
     Active Substance: DIMETHYL FUMARATE
     Indication: RELAPSING-REMITTING MULTIPLE SCLEROSIS
     Route: 065
     Dates: start: 2015
  2. CYCLOPHOSPHAMIDE CHEMOTHERAPY AGENT [Concomitant]
     Indication: MULTIPLE SCLEROSIS
     Route: 065
     Dates: start: 201701
  3. RITUXIMAB. [Concomitant]
     Active Substance: RITUXIMAB
     Indication: B-CELL DEPLETION THERAPY
     Route: 065
     Dates: start: 201701

REACTIONS (47)
  - Apheresis [Unknown]
  - Syncope [Unknown]
  - Diplopia [Recovered/Resolved]
  - Optic nerve injury [Unknown]
  - Dizziness [Unknown]
  - Decreased appetite [Unknown]
  - Infertility [Unknown]
  - Multiple sclerosis [Unknown]
  - Asthenia [Unknown]
  - Hypoaesthesia [Unknown]
  - Muscular weakness [Unknown]
  - Hypersomnia [Unknown]
  - Nervousness [Unknown]
  - Speech disorder [Unknown]
  - Fear [Unknown]
  - Aphasia [Unknown]
  - Migraine [Unknown]
  - Multiple sclerosis relapse [Unknown]
  - Contusion [Unknown]
  - Sensory disturbance [Unknown]
  - Cold sweat [Unknown]
  - Insomnia [Unknown]
  - Gait disturbance [Unknown]
  - Feeling abnormal [Unknown]
  - Tinnitus [Not Recovered/Not Resolved]
  - Mental impairment [Unknown]
  - Gait inability [Unknown]
  - Muscle spasms [Unknown]
  - Chills [Unknown]
  - Fatigue [Unknown]
  - Cerebral disorder [Unknown]
  - Musculoskeletal stiffness [Unknown]
  - Clumsiness [Unknown]
  - Stem cell transplant [Unknown]
  - Poor quality sleep [Unknown]
  - Pain [Unknown]
  - Alopecia [Unknown]
  - Memory impairment [Unknown]
  - Malaise [Unknown]
  - Headache [Unknown]
  - Bladder disorder [Unknown]
  - Hot flush [Unknown]
  - Drug ineffective [Unknown]
  - Loss of proprioception [Unknown]
  - Cognitive disorder [Unknown]
  - Eye patch application [Unknown]
  - Visual pathway disorder [Unknown]

NARRATIVE: CASE EVENT DATE: 2016
